FAERS Safety Report 6012677-8 (Version None)
Quarter: 2008Q4

REPORT INFORMATION
  Report Type: 
  Country: None (occurrence: None)
  Receive Date: 20081210
  Receipt Date: 20081126
  Transmission Date: 20090506
  Serious: Yes (Life-Threatening, Other)
  Sender: FDA-Public Use
  Company Number: ALB-010-08-FR

PATIENT
  Age: 3 Year
  Sex: Male

DRUGS (3)
  1. ALBUMIN (HUMAN) [Suspect]
     Indication: HYPOALBUMINAEMIA
     Dosage: 100 G
     Route: 042
     Dates: start: 20081011, end: 20081011
  2. ASPARAGINASE (ASPARAGINASE [Concomitant]
  3. VINCRISTINE [Concomitant]

REACTIONS (3)
  - ACCIDENTAL OVERDOSE [None]
  - PULMONARY OEDEMA [None]
  - TACHYPNOEA [None]
